FAERS Safety Report 9269648 (Version 2)
Quarter: 2013Q2

REPORT INFORMATION
  Report Type: Spontaneous
  Country: IN (occurrence: IN)
  Receive Date: 20130503
  Receipt Date: 20130509
  Transmission Date: 20140414
  Serious: Yes (Death)
  Sender: FDA-Public Use
  Company Number: IN-BRISTOL-MYERS SQUIBB COMPANY-18828749

PATIENT
  Age: 43 Year
  Sex: Male

DRUGS (1)
  1. BARACLUDE [Suspect]
     Dates: start: 20080327, end: 20120328

REACTIONS (1)
  - Hepatitis B [Fatal]
